FAERS Safety Report 10866671 (Version 1)
Quarter: 2015Q1

REPORT INFORMATION
  Report Type: Spontaneous
  Country: None (occurrence: None)
  Receive Date: 20150220
  Receipt Date: 20150220
  Transmission Date: 20150721
  Serious: Yes (Hospitalization)
  Sender: FDA-Public Use
  Company Number: None

PATIENT
  Age: 8 Year
  Sex: Female
  Weight: 18.85 kg

DRUGS (2)
  1. TEMOZOLOMIDE. [Suspect]
     Active Substance: TEMOZOLOMIDE
     Dates: end: 20150130
  2. CAMPTOSAR [Suspect]
     Active Substance: IRINOTECAN HYDROCHLORIDE
     Dates: end: 20150130

REACTIONS (10)
  - Drooling [None]
  - Vomiting [None]
  - Nausea [None]
  - Mental status changes [None]
  - Gaze palsy [None]
  - Oxygen saturation decreased [None]
  - Hyponatraemia [None]
  - Pyrexia [None]
  - Tardive dyskinesia [None]
  - Mutism [None]

NARRATIVE: CASE EVENT DATE: 20150215
